FAERS Safety Report 23383443 (Version 1)
Quarter: 2024Q1

REPORT INFORMATION
  Report Type: Spontaneous
  Country: TW (occurrence: TW)
  Receive Date: 20240109
  Receipt Date: 20240109
  Transmission Date: 20240409
  Serious: Yes (Death, Other)
  Sender: FDA-Public Use
  Company Number: TW-AMGEN-TWNSP2024001765

PATIENT

DRUGS (2)
  1. BEVACIZUMAB [Suspect]
     Active Substance: BEVACIZUMAB
     Indication: Hepatocellular carcinoma
     Dosage: UNK
     Route: 065
  2. ATEZOLIZUMAB [Suspect]
     Active Substance: ATEZOLIZUMAB
     Indication: Hepatocellular carcinoma
     Dosage: UNK
     Route: 065

REACTIONS (13)
  - Death [Fatal]
  - Hepatocellular carcinoma [Unknown]
  - Hepatic encephalopathy [Unknown]
  - Hypothyroidism [Unknown]
  - Hypertension [Unknown]
  - Fatigue [Unknown]
  - Blood bilirubin increased [Unknown]
  - Dermatitis [Unknown]
  - Palmar-plantar erythrodysaesthesia syndrome [Unknown]
  - Diarrhoea [Unknown]
  - Decreased appetite [Unknown]
  - Proteinuria [Unknown]
  - Off label use [Unknown]
